FAERS Safety Report 8059734-2 (Version None)
Quarter: 2012Q1

REPORT INFORMATION
  Report Type: 
  Country: None (occurrence: None)
  Receive Date: 20120120
  Receipt Date: 20120116
  Transmission Date: 20120608
  Serious: Yes (Other)
  Sender: FDA-Public Use
  Company Number: PHEH2011US011197

PATIENT
  Sex: Male

DRUGS (18)
  1. ACIPHEX [Concomitant]
     Dosage: 20 MG, QD
  2. LORATADINE [Concomitant]
     Dosage: 10 MG, QD
  3. WARFARIN SODIUM [Concomitant]
     Dosage: 5 MG, UNK
  4. SOTALOL HCL [Concomitant]
     Dosage: 80 MG, BID
  5. ACETAMINOPHEN [Concomitant]
  6. ZOLPIDEM [Concomitant]
  7. HYDROCODONE BITARTRATE [Concomitant]
     Dosage: UNK
  8. ADVAIR DISKUS 100/50 [Concomitant]
     Dosage: 2 DF A DAY
  9. DIOVAN [Suspect]
     Dosage: 320 MG, QD
  10. WARFARIN SODIUM [Concomitant]
     Dosage: UNK
  11. COLCHICINE [Concomitant]
  12. DILTIAZEM HCL [Concomitant]
     Dosage: 60 MG, BID
  13. VALSARTAN [Suspect]
     Dosage: UNK
  14. NITROSTAT [Concomitant]
  15. HYDROCHLOROTHIAZIDE [Concomitant]
     Dosage: 25 MG, QD
  16. ACETYLSALICYLIC ACID SRT [Concomitant]
     Dosage: UNK
  17. PRAVASTATIN [Concomitant]
     Dosage: 20 MG, BID
  18. XANAX [Concomitant]

REACTIONS (2)
  - CEREBROVASCULAR ACCIDENT [None]
  - AMNESIA [None]
